FAERS Safety Report 17346690 (Version 1)
Quarter: 2020Q1

REPORT INFORMATION
  Report Type: Spontaneous
  Country: IL (occurrence: IL)
  Receive Date: 20200129
  Receipt Date: 20200129
  Transmission Date: 20200409
  Serious: No
  Sender: FDA-Public Use
  Company Number: IL-EXELIXIS-CABO-19023326

PATIENT
  Age: 66 Year
  Sex: Male

DRUGS (1)
  1. CABOMETYX [Suspect]
     Active Substance: CABOZANTINIB S-MALATE
     Indication: PRODUCT USED FOR UNKNOWN INDICATION
     Dosage: 60 MG, (5 DAYS/WEEK, 2 DAY CESSATION, ALTENATIVELY)
     Dates: start: 201903

REACTIONS (3)
  - Stomatitis [Unknown]
  - Skin ulcer [Unknown]
  - Constipation [Unknown]
